FAERS Safety Report 12898297 (Version 3)
Quarter: 2019Q2

REPORT INFORMATION
  Report Type: Spontaneous
  Country: CA (occurrence: CA)
  Receive Date: 20161031
  Receipt Date: 20190624
  Transmission Date: 20190711
  Serious: Yes (Other)
  Sender: FDA-Public Use
  Company Number: CA-PFIZER INC-2013193276

PATIENT
  Age: 60 Year
  Sex: Female

DRUGS (36)
  1. METHOTREXATE SODIUM. [Suspect]
     Active Substance: METHOTREXATE SODIUM
     Dosage: UNK
     Route: 065
  2. ASPIRIN. [Concomitant]
     Active Substance: ASPIRIN
     Dosage: UNK
  3. CETAPHIL [Concomitant]
     Active Substance: AVOBENZONE\OCTOCRYLENE\TRICLOSAN
     Dosage: UNK
  4. VITAMIN B COMPLEX [Concomitant]
     Active Substance: CYANOCOBALAMIN\DEXPANTHENOL\NIACINAMIDE\PYRIDOXINE HYDROCHLORIDE\RIBOFLAVIN 5^-PHOSPHATE SODIUM\THIAMINE HYDROCHLORIDE\VITAMIN B COMPLEX
     Dosage: UNK
  5. VITAMIN D [Concomitant]
     Active Substance: VITAMIN D NOS
     Dosage: UNK
  6. METHOTREXATE SODIUM. [Suspect]
     Active Substance: METHOTREXATE SODIUM
     Dosage: UNK
     Route: 065
  7. PREDNISONE. [Concomitant]
     Active Substance: PREDNISONE
     Dosage: UNK
  8. APO FENO SUPER [Concomitant]
     Dosage: UNK
  9. FOLVITE [Concomitant]
     Active Substance: FOLIC ACID
     Dosage: UNK
  10. MINERAL OIL W/PETROLATUM [Concomitant]
     Dosage: UNK
  11. PANTOPRAZOLE SODIUM. [Concomitant]
     Active Substance: PANTOPRAZOLE SODIUM
     Dosage: UNK
  12. ACETAMINOPHEN;PHENYLEPHRINE HYDROCHLORIDE [Concomitant]
  13. NICOTINAMIDE;PANTHENOL;PYRIDOXINE HYDROCHLORIDE;RIBOFLAVIN;THIAMINE HY [Concomitant]
     Dosage: UNK
  14. ENBREL [Suspect]
     Active Substance: ETANERCEPT
     Indication: RHEUMATOID ARTHRITIS
     Dosage: 50 MG, UNK
     Route: 065
     Dates: start: 20121012
  15. ENBREL [Suspect]
     Active Substance: ETANERCEPT
     Dosage: 50 MG, UNK
     Route: 065
     Dates: start: 20140731
  16. ESTRIOL [Concomitant]
     Active Substance: ESTRIOL
     Dosage: UNK
  17. LEUCOVORIN. [Concomitant]
     Active Substance: LEUCOVORIN
     Dosage: UNK
  18. REFRESH LACRI LUBE [Concomitant]
  19. EPHEDRINE HYDROCHLORIDE [Concomitant]
     Active Substance: EPHEDRINE HYDROCHLORIDE
     Dosage: UNK
  20. CELEBREX [Concomitant]
     Active Substance: CELECOXIB
     Dosage: UNK
  21. ACTONEL [Concomitant]
     Active Substance: RISEDRONATE SODIUM
     Dosage: UNK
  22. CALCIUM [Concomitant]
     Active Substance: CALCIUM
     Dosage: UNK
  23. ERGOCALCIFEROL. [Concomitant]
     Active Substance: ERGOCALCIFEROL
     Dosage: UNK
  24. ELAVIL [Concomitant]
     Active Substance: AMITRIPTYLINE HYDROCHLORIDE
     Dosage: 1/2 A TABLET
  25. ASAFEN [Concomitant]
     Dosage: UNK
  26. PREGABALIN. [Concomitant]
     Active Substance: PREGABALIN
     Dosage: 75 MG, UNK
  27. LACRILUBE [Concomitant]
     Dosage: UNK
  28. CALCIUM D PANTOTHENATE [Concomitant]
     Active Substance: CALCIUM PANTOTHENATE
     Dosage: UNK
  29. PROLIA [Suspect]
     Active Substance: DENOSUMAB
     Dosage: UNK
     Route: 065
  30. PANTOLOC [Concomitant]
     Active Substance: PANTOPRAZOLE SODIUM
     Dosage: UNK
  31. FENOFIBRATE. [Concomitant]
     Active Substance: FENOFIBRATE
     Dosage: UNK
  32. ACETAMINOPHEN;CAFFEINE [Concomitant]
     Active Substance: ACETAMINOPHEN\CAFFEINE
     Dosage: UNK
  33. METHOTREXATE. [Concomitant]
     Active Substance: METHOTREXATE
     Dosage: UNK
     Route: 065
  34. FOLIC ACID. [Concomitant]
     Active Substance: FOLIC ACID
     Dosage: UNK
  35. CHLORPHENAMINE MALEATE [Concomitant]
     Active Substance: CHLORPHENIRAMINE MALEATE
     Dosage: UNK
  36. THENYLDIAMINE. [Concomitant]
     Active Substance: THENYLDIAMINE
     Dosage: UNK

REACTIONS (38)
  - Cellulitis [Unknown]
  - Dry eye [Unknown]
  - Sjogren^s syndrome [Unknown]
  - Vomiting [Unknown]
  - Nervous system disorder [Unknown]
  - Hypoaesthesia [Unknown]
  - Pyrexia [Unknown]
  - Rhinorrhoea [Unknown]
  - Conjunctivitis [Unknown]
  - Hot flush [Unknown]
  - Rheumatoid arthritis [Unknown]
  - Eye degenerative disorder [Unknown]
  - Gastrointestinal disorder [Unknown]
  - Headache [Unknown]
  - Dysuria [Unknown]
  - Diarrhoea [Unknown]
  - Eye infection [Unknown]
  - Haemoptysis [Unknown]
  - Eye swelling [Unknown]
  - Eye discharge [Unknown]
  - Eye irritation [Unknown]
  - Arthritis [Unknown]
  - Eye inflammation [Unknown]
  - Infection susceptibility increased [Unknown]
  - Epistaxis [Unknown]
  - Rhinitis [Unknown]
  - Eyelid margin crusting [Unknown]
  - Nausea [Unknown]
  - Onychomadesis [Unknown]
  - Faeces soft [Unknown]
  - Nasopharyngitis [Unknown]
  - Nasal dryness [Unknown]
  - Osteoarthritis [Unknown]
  - Injection site pain [Unknown]
  - Fatigue [Unknown]
  - Visual acuity reduced [Not Recovered/Not Resolved]
  - Burning sensation [Unknown]
  - Lacrimal structural disorder [Unknown]

NARRATIVE: CASE EVENT DATE: 201210
